FAERS Safety Report 7568718-X (Version None)
Quarter: 2011Q2

REPORT INFORMATION
  Report Type: 
  Country: None (occurrence: None)
  Receive Date: 20110623
  Receipt Date: 20110615
  Transmission Date: 20111010
  Serious: Yes (Death, Life-Threatening, Disabling)
  Sender: FDA-Public Use
  Company Number: US-MERCK-1106USA01949

PATIENT

DRUGS (1)
  1. INVANZ [Suspect]
     Indication: PROPHYLAXIS
     Route: 042

REACTIONS (1)
  - SEPSIS [None]
